FAERS Safety Report 19677125 (Version 2)
Quarter: 2021Q3

REPORT INFORMATION
  Report Type: Spontaneous
  Country: US (occurrence: US)
  Receive Date: 20210809
  Receipt Date: 20210809
  Transmission Date: 20211014
  Serious: Yes (Other)
  Sender: FDA-Public Use
  Company Number: US-PFIZER INC-HQWYE557111DEC03

PATIENT
  Age: 36 Year
  Sex: Female

DRUGS (3)
  1. METHOTREXATE SODIUM. [Suspect]
     Active Substance: METHOTREXATE SODIUM
     Indication: ABORTION INDUCED
     Dosage: 50 MG/M2, CYCLIC
     Route: 065
  2. MISOPROSTOL. [Suspect]
     Active Substance: MISOPROSTOL
     Indication: ABORTION INDUCED
     Dosage: 800 UG, CYCLIC
     Route: 065
  3. METHYLDOPA. [Concomitant]
     Active Substance: METHYLDOPA
     Dosage: UNK
     Route: 065

REACTIONS (4)
  - Maternal exposure timing unspecified [Unknown]
  - Off label use [Unknown]
  - Induced abortion failed [Unknown]
  - Drug ineffective for unapproved indication [Unknown]
